FAERS Safety Report 6768926-1 (Version None)
Quarter: 2010Q2

REPORT INFORMATION
  Report Type: 
  Country: None (occurrence: None)
  Receive Date: 20100615
  Receipt Date: 20100602
  Transmission Date: 20101027
  Serious: Yes (Hospitalization)
  Sender: FDA-Public Use
  Company Number: US-BIOGENIDEC-2010BI003694

PATIENT
  Age: 48 Year
  Sex: Male
  Weight: 129 kg

DRUGS (8)
  1. TYSABRI [Suspect]
     Indication: MULTIPLE SCLEROSIS
     Route: 042
     Dates: start: 20090213
  2. CARDURA [Concomitant]
     Route: 048
     Dates: start: 20010501, end: 20091218
  3. ALLEGRA [Concomitant]
     Dates: start: 20090601
  4. NUVIGIL [Concomitant]
     Route: 048
     Dates: start: 20090601
  5. MIRALAX [Concomitant]
     Route: 048
     Dates: start: 20090101
  6. MOBIC [Concomitant]
     Route: 048
     Dates: start: 20000101
  7. NORTRIPTYLINE HCL [Concomitant]
     Route: 048
     Dates: start: 20010201
  8. MULTI-VITAMINS [Concomitant]

REACTIONS (19)
  - ASTHENIA [None]
  - BALANCE DISORDER [None]
  - CEREBELLAR ATROPHY [None]
  - DEHYDRATION [None]
  - DIZZINESS [None]
  - ELECTROCARDIOGRAM QT PROLONGED [None]
  - FALL [None]
  - GASTROINTESTINAL INJURY [None]
  - HAEMATURIA [None]
  - HAEMORRHAGE [None]
  - HYPOTENSION [None]
  - MEDICAL DEVICE COMPLICATION [None]
  - NAUSEA [None]
  - PAIN [None]
  - PENIS INJURY [None]
  - RECTAL PERFORATION [None]
  - SYNCOPE [None]
  - THROMBOSIS [None]
  - URINARY TRACT INFECTION [None]
